FAERS Safety Report 17483396 (Version 1)
Quarter: 2020Q1

REPORT INFORMATION
  Report Type: Spontaneous
  Country: US (occurrence: US)
  Receive Date: 20200228
  Receipt Date: 20200228
  Transmission Date: 20200409
  Serious: Yes (Hospitalization, Other)
  Sender: FDA-Public Use
  Company Number: None

PATIENT
  Age: 84 Year
  Sex: Female
  Weight: 44 kg

DRUGS (14)
  1. LEXISCAN [Suspect]
     Active Substance: REGADENOSON
  2. DONEPEZIL HYDROCHLORIDE. [Concomitant]
     Active Substance: DONEPEZIL HYDROCHLORIDE
  3. ZOLOFT (SERTROLINE) [Concomitant]
  4. FLUDROCORTISONE ACETATE. [Concomitant]
     Active Substance: FLUDROCORTISONE ACETATE
  5. FENOFIBRATE. [Concomitant]
     Active Substance: FENOFIBRATE
  6. ALBUTEROL SULFATE INHALANT [Concomitant]
  7. SINGULAIR [Concomitant]
     Active Substance: MONTELUKAST SODIUM
  8. SPIRIVA RESPIMAT [Concomitant]
     Active Substance: TIOTROPIUM BROMIDE
  9. ALBUTEROL SULFATE WITH NEBULIZER [Concomitant]
  10. SYMBICORT INHALANT [Concomitant]
  11. TYLENOL [Concomitant]
     Active Substance: ACETAMINOPHEN
  12. WARFARIN [Concomitant]
     Active Substance: WARFARIN
  13. ASTELIN (AZELASTINE) [Concomitant]
  14. NAMENDA (MEMANTINE) [Concomitant]

REACTIONS (9)
  - Anal incontinence [None]
  - Cardiac stress test [None]
  - Urinary incontinence [None]
  - Asthenia [None]
  - Procedural complication [None]
  - Syncope [None]
  - Loss of consciousness [None]
  - Anxiety [None]
  - Pallor [None]

NARRATIVE: CASE EVENT DATE: 20191216
